FAERS Safety Report 7151708-9 (Version None)
Quarter: 2010Q4

REPORT INFORMATION
  Report Type: 
  Country: None (occurrence: None)
  Receive Date: 20101210
  Receipt Date: 20101207
  Transmission Date: 20110411
  Serious: Yes (Other)
  Sender: FDA-Public Use
  Company Number: IT-PFIZER INC-2010167602

PATIENT
  Age: 67 Year
  Sex: Female

DRUGS (2)
  1. SALAZOPYRIN [Suspect]
     Indication: RHEUMATOID ARTHRITIS
     Dosage: 4 UNITS DAILY
     Route: 048
     Dates: start: 20090401, end: 20090401
  2. MEDROL [Concomitant]
     Dosage: UNK

REACTIONS (1)
  - GASTRITIS [None]
